FAERS Safety Report 23225483 (Version 1)
Quarter: 2023Q4

REPORT INFORMATION
  Report Type: Spontaneous
  Country: SE (occurrence: SE)
  Receive Date: 20231124
  Receipt Date: 20231124
  Transmission Date: 20240110
  Serious: Yes (Congenital Anomaly, Other)
  Sender: FDA-Public Use
  Company Number: SE-CAMURUS AB-SE-CAM-23-00846

PATIENT

DRUGS (8)
  1. BUPRENORPHINE [Suspect]
     Active Substance: BUPRENORPHINE
     Indication: Product used for unknown indication
     Dosage: 32 MILLIGRAM
     Route: 065
     Dates: start: 20210511
  2. BUPRENORPHINE [Suspect]
     Active Substance: BUPRENORPHINE
     Dosage: 32 MILLIGRAM
     Route: 065
     Dates: start: 20210408
  3. BUPRENORPHINE [Suspect]
     Active Substance: BUPRENORPHINE
     Dosage: 24 MILLIGRAM
     Route: 064
     Dates: start: 20210709, end: 20210812
  4. BUPRENORPHINE [Suspect]
     Active Substance: BUPRENORPHINE
     Dosage: 128 MILLIGRAM
     Route: 065
     Dates: start: 20210414
  5. BUPRENORPHINE [Suspect]
     Active Substance: BUPRENORPHINE
     Indication: Product used for unknown indication
     Dosage: 16 MILLIGRAM
     Route: 064
     Dates: start: 20210813
  6. RHINOCORT AQUA [Suspect]
     Active Substance: BUDESONIDE
     Indication: Product used for unknown indication
     Dosage: 64 MICROGRAM, BID
     Route: 064
  7. ALLYLESTRENOL [Suspect]
     Active Substance: ALLYLESTRENOL
     Indication: Product used for unknown indication
     Dosage: 75 MICROGRAM, QD
     Route: 064
  8. TRIMEPRAZINE [Suspect]
     Active Substance: TRIMEPRAZINE
     Indication: Product used for unknown indication
     Dosage: 40 MILLIGRAM, PRN
     Route: 064

REACTIONS (2)
  - Cleft palate [Unknown]
  - Maternal exposure during pregnancy [Unknown]

NARRATIVE: CASE EVENT DATE: 20210601
